FAERS Safety Report 25553262 (Version 1)
Quarter: 2025Q3

REPORT INFORMATION
  Report Type: Report from Study
  Country: US (occurrence: US)
  Receive Date: 20250715
  Receipt Date: 20250715
  Transmission Date: 20251021
  Serious: Yes (Other)
  Sender: ABBVIE
  Company Number: US-ABBVIE-6369248

PATIENT
  Age: 40 Year
  Sex: Female

DRUGS (1)
  1. RINVOQ [Suspect]
     Active Substance: UPADACITINIB
     Indication: Product used for unknown indication
     Route: 048
     Dates: start: 202504

REACTIONS (4)
  - Toothache [Recovering/Resolving]
  - Dental caries [Unknown]
  - Tooth infection [Unknown]
  - Nerve injury [Unknown]

NARRATIVE: CASE EVENT DATE: 20250101
